FAERS Safety Report 8037483-4 (Version None)
Quarter: 2012Q1

REPORT INFORMATION
  Report Type: 
  Country: None (occurrence: None)
  Receive Date: 20120111
  Receipt Date: 20120104
  Transmission Date: 20120608
  Serious: Yes (Hospitalization)
  Sender: FDA-Public Use
  Company Number: FR-PFIZER INC-2012001697

PATIENT
  Age: 68 Year
  Sex: Male

DRUGS (4)
  1. ROCEPHIN [Suspect]
     Dosage: 1 G, 1X/DAY
     Route: 058
     Dates: start: 20110923, end: 20111006
  2. TRAMADOL HCL [Concomitant]
     Dosage: 200 MG, 1X/DAY
     Route: 048
     Dates: start: 20110923, end: 20111024
  3. VFEND [Suspect]
     Dosage: 400 MG, 1X/DAY
     Route: 048
     Dates: start: 20110923, end: 20111012
  4. FLAGYL [Suspect]
     Dosage: 1500 MG A DAY
     Route: 048
     Dates: start: 20110923, end: 20111006

REACTIONS (3)
  - OEDEMA PERIPHERAL [None]
  - NAUSEA [None]
  - HEPATOTOXICITY [None]
